FAERS Safety Report 5197385-8 (Version None)
Quarter: 2006Q4

REPORT INFORMATION
  Report Type: 
  Country: None (occurrence: None)
  Receive Date: 20060928
  Receipt Date: 20050830
  Transmission Date: 20070319
  Serious: Yes (Hospitalization)
  Sender: FDA-Public Use
  Company Number: 2005090001

PATIENT
  Age: 6 Year
  Sex: Female
  Weight: 17 kg

DRUGS (5)
  1. FELBATOL [Suspect]
     Indication: PARTIAL SEIZURES
     Dosage: 750 MG BID, P.O.
     Route: 048
     Dates: start: 20041101, end: 20050818
  2. CEFTRIAXONE [Suspect]
     Indication: INFECTED INSECT BITE
     Dosage: IV
     Route: 042
     Dates: start: 20050810, end: 20050811
  3. TOPAMAX [Concomitant]
  4. KEPPRA [Concomitant]
  5. PHENOBARBITAL TAB [Concomitant]

REACTIONS (3)
  - HEPATITIS [None]
  - INFECTED INSECT BITE [None]
  - STATUS EPILEPTICUS [None]
